FAERS Safety Report 7715545-6 (Version None)
Quarter: 2011Q3

REPORT INFORMATION
  Report Type: 
  Country: None (occurrence: None)
  Receive Date: 20110829
  Receipt Date: 20110817
  Transmission Date: 20111222
  Serious: Yes (Other)
  Sender: FDA-Public Use
  Company Number: US-AMGEN-USASP2011034840

PATIENT
  Age: 71 Year
  Sex: Male

DRUGS (2)
  1. ENBREL [Suspect]
     Dates: start: 20110624
  2. ENBREL [Suspect]
     Indication: PSORIASIS
     Dosage: 50 MG, 2 TIMES/WK
     Dates: start: 20110601

REACTIONS (13)
  - TREMOR [None]
  - DIZZINESS [None]
  - DIZZINESS POSTURAL [None]
  - DIVERTICULITIS [None]
  - INFLUENZA LIKE ILLNESS [None]
  - UPPER-AIRWAY COUGH SYNDROME [None]
  - MALAISE [None]
  - FATIGUE [None]
  - NAUSEA [None]
  - PARANASAL SINUS HYPERSECRETION [None]
  - HEADACHE [None]
  - HYPOTENSION [None]
  - PSORIASIS [None]
